FAERS Safety Report 5791982-4 (Version None)
Quarter: 2008Q2

REPORT INFORMATION
  Report Type: 
  Country: None (occurrence: None)
  Receive Date: 20080626
  Receipt Date: 20080624
  Transmission Date: 20081010
  Serious: Yes (Hospitalization)
  Sender: FDA-Public Use
  Company Number: DE-BRISTOL-MYERS SQUIBB COMPANY-14238794

PATIENT
  Age: 63 Year
  Sex: Female
  Weight: 54 kg

DRUGS (6)
  1. TAXOL [Suspect]
     Indication: BREAST CANCER
     Dosage: INTIATED ON 05-MAR-2008
     Route: 042
     Dates: start: 20080305, end: 20080521
  2. CYCLOPHOSPHAMIDE [Suspect]
     Indication: BREAST CANCER
     Dosage: INTIATED ON 09-JAN-2008
     Route: 042
     Dates: start: 20080109, end: 20080220
  3. XELODA [Suspect]
     Indication: BREAST CANCER
     Dosage: FREQ: Q3W(1-14)-ONCE A DAY FOR 2 WEEKS EVERY 3 WEEKS.  INTIATED ON 05-MAR-2008
     Route: 048
     Dates: start: 20080305, end: 20080527
  4. EPIRUBICIN [Suspect]
     Indication: BREAST CANCER
     Dosage: INTIATED ON 09-JAN-2008
     Route: 042
     Dates: start: 20080109, end: 20080220
  5. NEORECORMON [Concomitant]
     Dosage: 1 DOSAGE FORM = 30000 IU
     Route: 058
     Dates: start: 20080109, end: 20080514
  6. NEULASTA [Concomitant]
     Route: 057
     Dates: start: 20080109, end: 20080220

REACTIONS (1)
  - FACIAL PALSY [None]
